FAERS Safety Report 21232790 (Version 1)
Quarter: 2022Q3

REPORT INFORMATION
  Report Type: Spontaneous
  Country: US (occurrence: US)
  Receive Date: 20220819
  Receipt Date: 20220819
  Transmission Date: 20221027
  Serious: No
  Sender: FDA-Public Use
  Company Number: US-PFIZER INC-PV202200045594

PATIENT
  Age: 52 Year
  Sex: Female

DRUGS (2)
  1. XELJANZ XR [Suspect]
     Active Substance: TOFACITINIB CITRATE
     Dosage: UNK (QUANTITY REQUESTED: UP TO 30 TABLETS PER 30 DAYS)
  2. METHOTREXATE SODIUM [Suspect]
     Active Substance: METHOTREXATE SODIUM
     Dosage: UNK, ALTERNATE DAY (CURRENTLY ON METHOTREXATE EVERY OTHER DAY)

REACTIONS (7)
  - Therapeutic product effect incomplete [Unknown]
  - Pain [Unknown]
  - Joint swelling [Unknown]
  - Peripheral swelling [Unknown]
  - Joint stiffness [Unknown]
  - Arthralgia [Unknown]
  - Joint swelling [Unknown]
